FAERS Safety Report 21212526 (Version 1)
Quarter: 2022Q3

REPORT INFORMATION
  Report Type: Spontaneous
  Country: US (occurrence: None)
  Receive Date: 20220813
  Receipt Date: 20220813
  Transmission Date: 20221027
  Serious: Yes (Other)
  Sender: FDA-Public Use
  Company Number: None

PATIENT
  Age: 37 Year
  Sex: Male
  Weight: 109.35 kg

DRUGS (1)
  1. TRICHLOROACETIC ACID [Suspect]
     Active Substance: TRICHLOROACETIC ACID
     Indication: Acne
     Dosage: OTHER STRENGTH : 1 DRAM;?
     Route: 061
     Dates: start: 20220808

REACTIONS (2)
  - Chemical peel of skin [None]
  - Chemical burn of skin [None]

NARRATIVE: CASE EVENT DATE: 20220808
